FAERS Safety Report 14968174 (Version 1)
Quarter: 2018Q2

REPORT INFORMATION
  Report Type: Spontaneous
  Country: SE (occurrence: SE)
  Receive Date: 20180604
  Receipt Date: 20180604
  Transmission Date: 20180711
  Serious: Yes (Hospitalization)
  Sender: FDA-Public Use
  Company Number: SE-MICRO LABS LIMITED-BB2018-01091

PATIENT
  Age: 88 Year
  Sex: Female

DRUGS (9)
  1. GLYTRIN 0,4 MG/DOS SUBLINGUALSPRAY [Concomitant]
  2. SIMVASTATIN. [Suspect]
     Active Substance: SIMVASTATIN
  3. OXYCODONE [Concomitant]
     Active Substance: OXYCODONE
  4. WARAN [Concomitant]
     Active Substance: WARFARIN SODIUM
  5. ALVEDON 500 MG FILMDRAGERAD TABLETT [Concomitant]
  6. METOLAZONE. [Suspect]
     Active Substance: METOLAZONE
  7. CANDESARTAN. [Suspect]
     Active Substance: CANDESARTAN
  8. LEVAXIN [Concomitant]
     Active Substance: LEVOTHYROXINE SODIUM
  9. ALLOPURINOL TAKEDA 100 MG TABLETT [Concomitant]

REACTIONS (1)
  - Renal impairment [Not Recovered/Not Resolved]

NARRATIVE: CASE EVENT DATE: 20180425
